FAERS Safety Report 4606601-X (Version None)
Quarter: 2005Q2

REPORT INFORMATION
  Report Type: 
  Country: None (occurrence: None)
  Receive Date: 20050223
  Receipt Date: 20040511
  Transmission Date: 20051028
  Serious: Yes (Hospitalization)
  Sender: FDA-Public Use
  Company Number: WAES 0405USA00681

PATIENT
  Sex: 0

DRUGS (2)
  1. ZOCOR [Suspect]
     Dosage: 40 MG/PO; SEE IMAGE
     Route: 048
  2. NIASPAN [Suspect]
     Dosage: 500 MG/PO
     Route: 048

REACTIONS (3)
  - DRUG INTERACTION [None]
  - HEPATITIS [None]
  - RHABDOMYOLYSIS [None]
